FAERS Safety Report 21662496 (Version 3)
Quarter: 2022Q4

REPORT INFORMATION
  Report Type: Spontaneous
  Country: CO (occurrence: CO)
  Receive Date: 20221130
  Receipt Date: 20221229
  Transmission Date: 20230112
  Serious: No
  Sender: FDA-Public Use
  Company Number: CO-PFIZER INC-PV202200109153

PATIENT
  Age: 14 Year
  Sex: Male

DRUGS (1)
  1. GENOTROPIN [Suspect]
     Active Substance: SOMATROPIN
     Dosage: 1.6 MG, DAILY (AT NIGHT)
     Route: 058
     Dates: start: 201406

REACTIONS (3)
  - Device information output issue [Unknown]
  - Drug dose omission by device [Unknown]
  - Device use issue [Unknown]

NARRATIVE: CASE EVENT DATE: 20221120
